FAERS Safety Report 13002394 (Version 2)
Quarter: 2016Q4

REPORT INFORMATION
  Report Type: Spontaneous
  Country: US (occurrence: US)
  Receive Date: 20161206
  Receipt Date: 20161212
  Transmission Date: 20170207
  Serious: Yes (Other)
  Sender: FDA-Public Use
  Company Number: US-PFIZER INC-2016557399

PATIENT
  Age: 64 Year
  Sex: Female
  Weight: 71.67 kg

DRUGS (1)
  1. PRISTIQ EXTENDED-RELEASE [Suspect]
     Active Substance: DESVENLAFAXINE SUCCINATE
     Indication: DEPRESSION
     Dosage: 100 MG, DAILY

REACTIONS (8)
  - Tinnitus [Not Recovered/Not Resolved]
  - Eating disorder [Unknown]
  - Suicidal ideation [Unknown]
  - Headache [Unknown]
  - Crying [Not Recovered/Not Resolved]
  - Withdrawal syndrome [Not Recovered/Not Resolved]
  - Disturbance in attention [Unknown]
  - Vomiting [Unknown]

NARRATIVE: CASE EVENT DATE: 20161128
